FAERS Safety Report 5727918-1 (Version None)
Quarter: 2008Q2

REPORT INFORMATION
  Report Type: 
  Country: None (occurrence: None)
  Receive Date: 20080505
  Receipt Date: 20080423
  Transmission Date: 20081010
  Serious: Yes (Death, Hospitalization)
  Sender: FDA-Public Use
  Company Number: BR-PFIZER INC-2007068713

PATIENT
  Sex: Male

DRUGS (2)
  1. CHANTIX [Suspect]
     Route: 048
  2. MELOXICAM [Suspect]
     Indication: BONE PAIN

REACTIONS (4)
  - BONE PAIN [None]
  - EMPHYSEMA [None]
  - INTESTINAL PERFORATION [None]
  - RESPIRATORY FAILURE [None]
